FAERS Safety Report 12928831 (Version 1)
Quarter: 2016Q4

REPORT INFORMATION
  Report Type: Spontaneous
  Country: DE (occurrence: DE)
  Receive Date: 20161110
  Receipt Date: 20161110
  Transmission Date: 20170207
  Serious: Yes (Other)
  Sender: FDA-Public Use
  Company Number: DE-ABBVIE-16K-062-1774289-00

PATIENT
  Age: 78 Year
  Sex: Female

DRUGS (3)
  1. COXIB [Concomitant]
     Indication: RHEUMATIC DISORDER
     Route: 048
  2. HUMIRA [Suspect]
     Active Substance: ADALIMUMAB
     Indication: RHEUMATIC DISORDER
     Route: 058
  3. PREDNISOLONE. [Concomitant]
     Active Substance: PREDNISOLONE
     Indication: RHEUMATIC DISORDER
     Route: 058

REACTIONS (5)
  - Encephalitis [Not Recovered/Not Resolved]
  - Cerebral infarction [Not Recovered/Not Resolved]
  - Sinusitis [Not Recovered/Not Resolved]
  - Peptostreptococcus test positive [Not Recovered/Not Resolved]
  - Meningitis bacterial [Not Recovered/Not Resolved]

NARRATIVE: CASE EVENT DATE: 2016
